FAERS Safety Report 9533014 (Version 6)
Quarter: 2014Q1

REPORT INFORMATION
  Report Type: Report from Study
  Country: GB (occurrence: GB)
  Receive Date: 20130918
  Receipt Date: 20140130
  Transmission Date: 20141002
  Serious: Yes (Death, Hospitalization, Other)
  Sender: FDA-Public Use
  Company Number: GB-VERTEX PHARMACEUTICALS INC-2013-009630

PATIENT
  Age: 53 Year
  Sex: Male
  Weight: 78 kg

DRUGS (6)
  1. VX-950 (TELAPREVIR) [Suspect]
     Indication: HEPATITIS C
     Dosage: 1125 MG, QD
     Route: 048
     Dates: start: 20130821, end: 20130903
  2. COPEGUS [Suspect]
     Indication: HEPATITIS C
     Dosage: 1200 MG, BID
     Route: 048
     Dates: start: 20130821, end: 20130903
  3. PEGASYS [Suspect]
     Indication: HEPATITIS C
     Dosage: 180 ?G, QW
     Route: 058
     Dates: start: 20130821, end: 20130903
  4. PROPRANOLOL [Concomitant]
     Indication: CARDIAC DISORDER
     Dosage: DOSAGE FORM: UNSPECIFIED
     Route: 048
     Dates: start: 2013
  5. METOCLOPRAMIDE [Concomitant]
     Indication: NAUSEA
     Dosage: DOSAGE FORM: UNSPECIFIED
     Route: 048
     Dates: start: 20130821
  6. CETRIZINE [Concomitant]
     Indication: URTICARIA
     Dosage: DOSAGE FORM: UNSPECIFIED
     Route: 048
     Dates: start: 20130821

REACTIONS (22)
  - Blood pressure decreased [Unknown]
  - Hepatic failure [Fatal]
  - Pyrexia [Unknown]
  - Pneumonia [Fatal]
  - Malaise [Unknown]
  - Pulmonary embolism [Fatal]
  - Candida infection [Unknown]
  - Liver disorder [Unknown]
  - Cardiac arrest [Fatal]
  - Sepsis [Fatal]
  - Condition aggravated [Unknown]
  - Headache [Not Recovered/Not Resolved]
  - Cough [Unknown]
  - Lethargy [Unknown]
  - Feeling abnormal [Unknown]
  - Fatigue [Not Recovered/Not Resolved]
  - Disorientation [Unknown]
  - Dyspnoea [Unknown]
  - Anxiety [Unknown]
  - Anxiety [Unknown]
  - Diarrhoea [Unknown]
  - Nausea [Not Recovered/Not Resolved]
